FAERS Safety Report 10364836 (Version 1)
Quarter: 2014Q3

REPORT INFORMATION
  Report Type: Spontaneous
  Country: GB (occurrence: GB)
  Receive Date: 20140806
  Receipt Date: 20140806
  Transmission Date: 20150326
  Serious: Yes (Other)
  Sender: FDA-Public Use
  Company Number: GB-MYLANLABS-#E2B0000047282

PATIENT

DRUGS (3)
  1. INTAL [Suspect]
     Active Substance: CROMOLYN SODIUM
     Dosage: UNK
     Route: 048
     Dates: end: 201112
  2. HYDRALAZINE [Suspect]
     Active Substance: HYDRALAZINE HYDROCHLORIDE
     Dosage: UNK
     Route: 065
     Dates: end: 201112
  3. RANITIDINE [Suspect]
     Active Substance: RANITIDINE\RANITIDINE HYDROCHLORIDE
     Dosage: UNK
     Route: 065
     Dates: end: 201112

REACTIONS (2)
  - Diarrhoea [Unknown]
  - Rash [Recovered/Resolved]
